FAERS Safety Report 9408785 (Version 1)
Quarter: 2013Q3

REPORT INFORMATION
  Report Type: Spontaneous
  Country: US (occurrence: US)
  Receive Date: 20130719
  Receipt Date: 20130719
  Transmission Date: 20140515
  Serious: Yes (Death)
  Sender: FDA-Public Use
  Company Number: US-AMGEN-USASP2013050147

PATIENT
  Age: 62 Year
  Sex: Female

DRUGS (6)
  1. ENBREL [Suspect]
     Indication: PRODUCT USED FOR UNKNOWN INDICATION
     Dosage: 25 MG, 2 TIMES/WK
     Route: 058
  2. LISINOPRIL [Concomitant]
     Dosage: 2.5 MG, UNK
  3. SERTRALINE [Concomitant]
     Dosage: 25 MG, UNK
  4. SIMVASTATIN [Concomitant]
     Dosage: 5 MG, UNK
  5. ADVAIR HFA [Concomitant]
     Dosage: UNK
  6. ALEVE [Concomitant]
     Dosage: 220 MG, UNK

REACTIONS (1)
  - Death [Fatal]
